FAERS Safety Report 23943824 (Version 1)
Quarter: 2024Q2

REPORT INFORMATION
  Report Type: Spontaneous
  Country: ME (occurrence: ME)
  Receive Date: 20240606
  Receipt Date: 20240606
  Transmission Date: 20240716
  Serious: Yes (Other)
  Sender: FDA-Public Use
  Company Number: ME-009507513-2009MNE004319

PATIENT
  Age: 40 Year
  Sex: Male

DRUGS (17)
  1. KEYTRUDA [Suspect]
     Active Substance: PEMBROLIZUMAB
     Indication: Nasopharyngeal cancer metastatic
     Dosage: UNK
     Dates: start: 201903, end: 201903
  2. KEYTRUDA [Suspect]
     Active Substance: PEMBROLIZUMAB
     Indication: Nasopharyngeal cancer metastatic
     Dosage: 200 MILLIGRAM, EVERY 21 DAYS, SECOND (II) CYCLE
     Dates: start: 20190502, end: 20190502
  3. KEYTRUDA [Suspect]
     Active Substance: PEMBROLIZUMAB
     Dosage: 200 MILLIGRAM, EVERY 21 DAYS, THIRD (III) CYCLE
     Dates: start: 201905, end: 201905
  4. KEYTRUDA [Suspect]
     Active Substance: PEMBROLIZUMAB
     Dosage: 200 MILLIGRAM, EVERY 21 DAYS, FOURTH (IV) CYCLE
     Dates: start: 201906, end: 201906
  5. KEYTRUDA [Suspect]
     Active Substance: PEMBROLIZUMAB
     Dosage: 200 MILLIGRAM, EVERY 21 DAYS, FIFTH (V) CYCLE
     Dates: start: 201907, end: 201907
  6. KEYTRUDA [Suspect]
     Active Substance: PEMBROLIZUMAB
     Dosage: 200 MILLIGRAM, EVERY 21 DAYS, EIGHTH (VIII) CYCLE
     Dates: start: 201909, end: 201909
  7. KEYTRUDA [Suspect]
     Active Substance: PEMBROLIZUMAB
     Dosage: 200 MILLIGRAM, EVERY 21 DAYS, NINTH (IX) CYCLE
     Dates: start: 201910, end: 201910
  8. KEYTRUDA [Suspect]
     Active Substance: PEMBROLIZUMAB
     Dosage: 200 MILLIGRAM, EVERY 21 DAYS, TENTH (X) CYCLE
     Dates: start: 201910, end: 201910
  9. KEYTRUDA [Suspect]
     Active Substance: PEMBROLIZUMAB
     Dosage: 200 MILLIGRAM, EVERY 21 DAYS, ELEVENTH (XI) CYCLE
     Dates: start: 201911, end: 201911
  10. KEYTRUDA [Suspect]
     Active Substance: PEMBROLIZUMAB
     Dosage: 200 MILLIGRAM, EVERY 21 DAYS, THIRTEENTH (XIII) CYCLE
     Dates: start: 202002, end: 202002
  11. KEYTRUDA [Suspect]
     Active Substance: PEMBROLIZUMAB
     Dosage: RECHALLENGE MONO UNTIL 20 CYCLES.
     Dates: start: 202301, end: 2024
  12. ZOMETA [Suspect]
     Active Substance: ZOLEDRONIC ACID
     Dosage: FIRST CYCLE IN TURKEY.
     Dates: start: 2019
  13. ZOMETA [Suspect]
     Active Substance: ZOLEDRONIC ACID
     Dosage: SECOND CYLCE IN MONTENEGRO.
     Dates: start: 201905
  14. ZOMETA [Suspect]
     Active Substance: ZOLEDRONIC ACID
     Dosage: THIRD CYCLE.
     Dates: start: 201906
  15. ZOMETA [Suspect]
     Active Substance: ZOLEDRONIC ACID
     Dosage: QUARTERLY
     Dates: start: 201907
  16. ZOMETA [Suspect]
     Active Substance: ZOLEDRONIC ACID
     Dosage: QUARTERLY
     Dates: start: 201910, end: 201911
  17. ZOMETA [Suspect]
     Active Substance: ZOLEDRONIC ACID
     Dosage: RECHALLENGE
     Dates: start: 202301

REACTIONS (11)
  - Nasopharyngeal cancer recurrent [Unknown]
  - Transaminases increased [Recovered/Resolved]
  - Haemangioma of liver [Unknown]
  - Haemoglobin abnormal [Recovered/Resolved]
  - Lymphadenopathy mediastinal [Recovered/Resolved]
  - Blood thyroid stimulating hormone abnormal [Recovered/Resolved]
  - Lymphadenopathy [Unknown]
  - Thyroxine abnormal [Recovered/Resolved]
  - Tri-iodothyronine free abnormal [Recovered/Resolved]
  - Malaise [Recovered/Resolved]
  - Blood creatinine increased [Not Recovered/Not Resolved]

NARRATIVE: CASE EVENT DATE: 20190101
